FAERS Safety Report 23253424 (Version 1)
Quarter: 2023Q4

REPORT INFORMATION
  Report Type: Spontaneous
  Country: IT (occurrence: IT)
  Receive Date: 20231202
  Receipt Date: 20231202
  Transmission Date: 20240110
  Serious: Yes (Other)
  Sender: FDA-Public Use
  Company Number: IT-AMGEN-ITASP2023211025

PATIENT
  Age: 70 Year
  Sex: Male

DRUGS (4)
  1. BEVACIZUMAB [Suspect]
     Active Substance: BEVACIZUMAB
     Indication: Colon cancer
     Dosage: 350 MILLIGRAM (START OF THERAPY 03-DEC-2022 - THERAPY EVERY 14 DAYS - 10TH AND 11ST CYCLE )
     Route: 040
     Dates: start: 20230516, end: 20230530
  2. FLUOROURACIL [Suspect]
     Active Substance: FLUOROURACIL
     Indication: Colon cancer
     Dosage: 3500 MILLIGRAM (ADVANCED COLON CANCER )
     Route: 040
     Dates: start: 20230516, end: 20230530
  3. OXALIPLATIN [Suspect]
     Active Substance: OXALIPLATIN
     Indication: Colon cancer
     Dosage: 120 MILLIGRAM (START OF THERAPY 03-DEC-2022 - THERAPY EVERY 14 DAYS - 10TH AND 11ST CYCLE)
     Route: 040
     Dates: start: 20230516, end: 20230530
  4. LEVOLEUCOVORIN [Concomitant]
     Active Substance: LEVOLEUCOVORIN
     Dosage: UNK

REACTIONS (3)
  - Azotaemia [Recovering/Resolving]
  - Neutropenia [Recovering/Resolving]
  - Leukopenia [Recovering/Resolving]

NARRATIVE: CASE EVENT DATE: 20230523
